FAERS Safety Report 19818987 (Version 1)
Quarter: 2021Q3

REPORT INFORMATION
  Report Type: Spontaneous
  Country: US (occurrence: US)
  Receive Date: 20210912
  Receipt Date: 20210912
  Transmission Date: 20211014
  Serious: No
  Sender: FDA-Public Use
  Company Number: US-B.I. PHARMACEUTICALS,INC./RIDGEFIELD-2021-BI-126399

PATIENT
  Age: 75 Year
  Sex: Male

DRUGS (4)
  1. VITAMIN B [VITAMIN B NOS] [Concomitant]
     Active Substance: VITAMIN B
     Indication: PRODUCT USED FOR UNKNOWN INDICATION
  2. JANUVIA [Concomitant]
     Active Substance: SITAGLIPTIN PHOSPHATE
     Indication: TYPE 2 DIABETES MELLITUS
     Dosage: 100MG
  3. METFORMIN [Concomitant]
     Active Substance: METFORMIN HYDROCHLORIDE
     Indication: TYPE 2 DIABETES MELLITUS
     Dosage: 1000MG TWO TIMES A DAY
  4. JARDIANCE [Suspect]
     Active Substance: EMPAGLIFLOZIN
     Indication: TYPE 2 DIABETES MELLITUS
     Dosage: 10 MG ONCE DAILY
     Dates: start: 202104

REACTIONS (11)
  - Asthenia [Unknown]
  - Abdominal distension [Unknown]
  - Abdominal pain upper [Not Recovered/Not Resolved]
  - Diarrhoea [Not Recovered/Not Resolved]
  - Headache [Not Recovered/Not Resolved]
  - Ageusia [Unknown]
  - Vomiting [Not Recovered/Not Resolved]
  - Hiccups [Unknown]
  - Urine analysis abnormal [Unknown]
  - Hypoaesthesia [Unknown]
  - Dizziness [Unknown]

NARRATIVE: CASE EVENT DATE: 2021
